FAERS Safety Report 15711716 (Version 1)
Quarter: 2018Q4

REPORT INFORMATION
  Report Type: Report from Study
  Country: CN (occurrence: CN)
  Receive Date: 20181212
  Receipt Date: 20181212
  Transmission Date: 20190205
  Serious: Yes (Death, Other)
  Sender: FDA-Public Use
  Company Number: CN-ROCHE-2227706

PATIENT
  Age: 17 Year
  Sex: Female

DRUGS (4)
  1. RITUXIMAB. [Suspect]
     Active Substance: RITUXIMAB
     Indication: THROMBOTIC THROMBOCYTOPENIC PURPURA
     Route: 042
  2. DIPHENHYDRAMINE. [Concomitant]
     Active Substance: DIPHENHYDRAMINE
     Indication: PROPHYLAXIS
  3. PARACETAMOL [Concomitant]
     Active Substance: ACETAMINOPHEN
     Indication: PROPHYLAXIS
  4. DEXAMETHASONE. [Concomitant]
     Active Substance: DEXAMETHASONE
     Indication: PROPHYLAXIS

REACTIONS (5)
  - Cerebral haemorrhage [Fatal]
  - Brain herniation [Fatal]
  - Gastrointestinal haemorrhage [Unknown]
  - Disseminated intravascular coagulation [Unknown]
  - Septic shock [Unknown]
